FAERS Safety Report 8827601 (Version 3)
Quarter: 2013Q1

REPORT INFORMATION
  Report Type: Spontaneous
  Country: US (occurrence: US)
  Receive Date: 20121008
  Receipt Date: 20130307
  Transmission Date: 20140127
  Serious: Yes (Hospitalization, Other)
  Sender: FDA-Public Use
  Company Number: US-JNJFOC-20121000238

PATIENT
  Sex: Female

DRUGS (4)
  1. RISPERDAL [Suspect]
     Indication: SCHIZOAFFECTIVE DISORDER
     Dosage: 2 TABLETS
     Route: 048
     Dates: end: 201209
  2. RISPERDAL [Suspect]
     Indication: PSYCHOTIC DISORDER
     Dosage: 2 TABLETS
     Route: 048
     Dates: end: 201209
  3. RISPERDAL [Suspect]
     Indication: DEPRESSION
     Dosage: 2 TABLETS
     Route: 048
     Dates: end: 201209
  4. RISPERDAL [Suspect]
     Indication: BIPOLAR DISORDER
     Dosage: 2 TABLETS
     Route: 048
     Dates: end: 201209

REACTIONS (5)
  - Overdose [Recovered/Resolved]
  - Hypotension [Unknown]
  - Cardiomyopathy [Unknown]
  - Chronic obstructive pulmonary disease [Unknown]
  - Renal failure chronic [Recovered/Resolved]
